FAERS Safety Report 6970869-5 (Version None)
Quarter: 2010Q3

REPORT INFORMATION
  Report Type: 
  Country: None (occurrence: None)
  Receive Date: 20100908
  Receipt Date: 20100831
  Transmission Date: 20110219
  Serious: Yes (Life-Threatening, Hospitalization)
  Sender: FDA-Public Use
  Company Number: B0672115A

PATIENT
  Sex: Male

DRUGS (10)
  1. ESKAZOLE [Suspect]
     Indication: ECHINOCOCCIASIS
     Dosage: 200MG TWICE PER DAY
     Route: 048
     Dates: start: 20100806, end: 20100824
  2. MIRTAZAPINE [Suspect]
     Indication: DEPRESSION
     Dosage: 15MG PER DAY
     Route: 048
     Dates: start: 20100820, end: 20100824
  3. NOROXIN [Suspect]
     Indication: URINARY TRACT INFECTION
     Dosage: 400MG TWICE PER DAY
     Route: 048
     Dates: start: 20100818, end: 20100823
  4. PYOSTACINE [Suspect]
     Route: 048
     Dates: start: 20100810, end: 20100824
  5. IMOVANE [Suspect]
     Indication: INSOMNIA
     Dosage: 3.75MG AT NIGHT
     Route: 048
     Dates: start: 20100811
  6. LASIX [Concomitant]
     Route: 065
  7. MYOLASTAN [Concomitant]
     Route: 065
  8. ACETAMINOPHEN [Concomitant]
     Route: 065
  9. DIFFU K [Concomitant]
     Route: 065
  10. BETNEVAL [Concomitant]
     Route: 065

REACTIONS (4)
  - BONE MARROW FAILURE [None]
  - EOSINOPHILIA [None]
  - GENERAL PHYSICAL HEALTH DETERIORATION [None]
  - PANCYTOPENIA [None]
